FAERS Safety Report 19625345 (Version 1)
Quarter: 2021Q3

REPORT INFORMATION
  Report Type: Spontaneous
  Country: FR (occurrence: FR)
  Receive Date: 20210728
  Receipt Date: 20210728
  Transmission Date: 20211014
  Serious: Yes (Disabling)
  Sender: FDA-Public Use
  Company Number: FR-ALLERGAN-2125615US

PATIENT
  Sex: Female
  Weight: 70 kg

DRUGS (2)
  1. BOTOX [Suspect]
     Active Substance: ONABOTULINUMTOXINA
     Indication: MUSCLE SPASTICITY
     Dosage: UNK , SINGLE
     Route: 030
     Dates: start: 20190423, end: 20190423
  2. BOTOX [Suspect]
     Active Substance: ONABOTULINUMTOXINA
     Dosage: UNK , SINGLE
     Route: 030
     Dates: start: 20190423, end: 20190423

REACTIONS (1)
  - Balance disorder [Not Recovered/Not Resolved]
